FAERS Safety Report 6619272-8 (Version None)
Quarter: 2010Q1

REPORT INFORMATION
  Report Type: 
  Country: None (occurrence: None)
  Receive Date: 20100303
  Receipt Date: 20100225
  Transmission Date: 20100710
  Serious: Yes (Death, Hospitalization)
  Sender: FDA-Public Use
  Company Number: 000245

PATIENT
  Sex: Male

DRUGS (13)
  1. VIMPAT [Suspect]
     Indication: EPILEPSY
     Dosage: (50 MG BID ORAL), (100 MG BID ORAL)
     Route: 048
     Dates: start: 20081118, end: 20081125
  2. VIMPAT [Suspect]
     Indication: EPILEPSY
     Dosage: (50 MG BID ORAL), (100 MG BID ORAL)
     Route: 048
     Dates: start: 20081126, end: 20081210
  3. KEPPRA [Concomitant]
  4. LAMOTRIGINE [Concomitant]
  5. VALPROIC ACID [Concomitant]
  6. ZINC SULFATE [Concomitant]
  7. ENALAPRIL MALEATE [Concomitant]
  8. AMLOBETA [Concomitant]
  9. ERGENYL CHRONO [Concomitant]
  10. ZONEGRAN [Concomitant]
  11. FUROSEMID /00032601/ [Concomitant]
  12. DOXAZOSIN [Concomitant]
  13. MOVICOL /01749801/ [Concomitant]

REACTIONS (2)
  - PNEUMONIA [None]
  - RENAL FAILURE [None]
